FAERS Safety Report 9461967 (Version 2)
Quarter: 2013Q4

REPORT INFORMATION
  Report Type: Spontaneous
  Country: US (occurrence: US)
  Receive Date: 20130816
  Receipt Date: 20131126
  Transmission Date: 20140711
  Serious: No
  Sender: FDA-Public Use
  Company Number: US-BRISTOL-MYERS SQUIBB COMPANY-18984724

PATIENT
  Age: 58 Year
  Sex: Female
  Weight: 66.21 kg

DRUGS (3)
  1. BYDUREON [Suspect]
     Indication: DIABETES MELLITUS INADEQUATE CONTROL
     Dosage: PRESCRIPTION : 67343272301
     Route: 058
     Dates: start: 20130522, end: 20130621
  2. GLYBURIDE + METFORMIN HCL [Suspect]
  3. MICARDIS [Concomitant]

REACTIONS (3)
  - Injection site nodule [Not Recovered/Not Resolved]
  - Injection site reaction [Not Recovered/Not Resolved]
  - Blood glucose increased [Recovering/Resolving]
